FAERS Safety Report 12977400 (Version 1)
Quarter: 2016Q4

REPORT INFORMATION
  Report Type: Spontaneous
  Country: US (occurrence: US)
  Receive Date: 20161128
  Receipt Date: 20161128
  Transmission Date: 20170207
  Serious: Yes (Other)
  Sender: FDA-Public Use
  Company Number: US-BRISTOL-MYERS SQUIBB COMPANY-BMS-2016-099511

PATIENT
  Sex: Male
  Weight: 79.37 kg

DRUGS (1)
  1. OPDIVO [Suspect]
     Active Substance: NIVOLUMAB
     Indication: HEPATIC CANCER
     Dosage: UNK
     Route: 042
     Dates: start: 201608, end: 20161117

REACTIONS (6)
  - Haemorrhage [Unknown]
  - Contusion [Unknown]
  - Alopecia [Unknown]
  - Weight decreased [Unknown]
  - Somnolence [Unknown]
  - Product use issue [Unknown]
